FAERS Safety Report 13272171 (Version 1)
Quarter: 2017Q1

REPORT INFORMATION
  Report Type: Spontaneous
  Country: US (occurrence: US)
  Receive Date: 20170224
  Receipt Date: 20170224
  Transmission Date: 20170428
  Serious: Yes (Hospitalization)
  Sender: FDA-Public Use
  Company Number: None

PATIENT
  Age: 20 Year
  Sex: Male

DRUGS (2)
  1. HYDROXYUREA. [Concomitant]
     Active Substance: HYDROXYUREA
  2. JADENU [Suspect]
     Active Substance: DEFERASIROX
     Indication: MAGNESIUM METABOLISM DISORDER
     Route: 048

REACTIONS (2)
  - Drug dose omission [None]
  - Sickle cell anaemia with crisis [None]
